FAERS Safety Report 23515493 (Version 1)
Quarter: 2024Q1

REPORT INFORMATION
  Report Type: Spontaneous
  Country: ES (occurrence: ES)
  Receive Date: 20240213
  Receipt Date: 20240213
  Transmission Date: 20240409
  Serious: Yes (Hospitalization)
  Sender: FDA-Public Use
  Company Number: None

PATIENT
  Age: 85 Year
  Sex: Female
  Weight: 65 kg

DRUGS (9)
  1. VENETOCLAX [Suspect]
     Active Substance: VENETOCLAX
     Indication: Acute myeloid leukaemia
     Dosage: 100 MG COMPRIMIDOS RECUBIERTOS CON PELICULA, 14 COMPRIMIDOS
     Route: 048
     Dates: start: 20230726, end: 20230815
  2. VENETOCLAX [Suspect]
     Active Substance: VENETOCLAX
     Indication: Acute myeloid leukaemia
     Dosage: 100 MG CADA 24H DURANTE 3 SEMANAS Y 1 DESCANSO?100 MG COMPRIMIDOS RECUBIERTOS CON PELICULA, 14 CO...
     Route: 048
     Dates: start: 20231127, end: 20231128
  3. VENETOCLAX [Suspect]
     Active Substance: VENETOCLAX
     Indication: Acute myeloid leukaemia
     Dosage: 100 MG COMPRIMIDOS RECUBIERTOS CON PELICULA, 14 COMPRIMIDOS
     Route: 048
     Dates: start: 20231017, end: 20231021
  4. VENETOCLAX [Suspect]
     Active Substance: VENETOCLAX
     Indication: Acute myeloid leukaemia
     Dosage: 100 MG COMPRIMIDOS RECUBIERTOS CON PELICULA, 14 COMPRIMIDOS
     Route: 048
     Dates: start: 20230911, end: 20230924
  5. AZACITIDINE [Suspect]
     Active Substance: AZACITIDINE
     Indication: Acute myeloid leukaemia
     Dosage: (8198A)
     Route: 058
     Dates: start: 20231017, end: 20231024
  6. AZACITIDINE [Suspect]
     Active Substance: AZACITIDINE
     Indication: Acute myeloid leukaemia
     Dosage: (8198A)
     Route: 048
     Dates: start: 20231228, end: 20240110
  7. AZACITIDINE [Suspect]
     Active Substance: AZACITIDINE
     Indication: Acute myeloid leukaemia
     Dosage: (8198A)
     Route: 058
     Dates: start: 20230726, end: 20230801
  8. AZACITIDINE [Suspect]
     Active Substance: AZACITIDINE
     Indication: Acute myeloid leukaemia
     Dosage: 1 ALD?A DURANTE 7 D?AS DE CADA CICLO (DESCONOZCO DOSIS, IMAGINO QUE 75 MG/M2)?(8198A)
     Route: 058
     Dates: start: 20231127, end: 20231128
  9. AZACITIDINE [Suspect]
     Active Substance: AZACITIDINE
     Indication: Acute myeloid leukaemia
     Dosage: (8198A)
     Route: 058
     Dates: start: 20230911, end: 20230917

REACTIONS (2)
  - Inappropriate antidiuretic hormone secretion [Recovered/Resolved]
  - Toxic encephalopathy [Recovered/Resolved]

NARRATIVE: CASE EVENT DATE: 20231128
